FAERS Safety Report 12165765 (Version 3)
Quarter: 2016Q2

REPORT INFORMATION
  Report Type: Spontaneous
  Country: QA (occurrence: QA)
  Receive Date: 20160309
  Receipt Date: 20160502
  Transmission Date: 20160815
  Serious: Yes (Other)
  Sender: FDA-Public Use
  Company Number: QA-JNJFOC-20160303837

PATIENT

DRUGS (2)
  1. SIMEPREVIR [Suspect]
     Active Substance: SIMEPREVIR
     Indication: HEPATITIS C
     Route: 048
  2. SOFOSBUVIR [Suspect]
     Active Substance: SOFOSBUVIR
     Indication: HEPATITIS C
     Route: 065

REACTIONS (7)
  - Product use issue [Unknown]
  - Rash [Unknown]
  - Blood albumin increased [Unknown]
  - Remission not achieved [Unknown]
  - Viral load increased [Unknown]
  - Off label use [Unknown]
  - Blood bilirubin increased [Unknown]
